FAERS Safety Report 9193275 (Version 1)
Quarter: 2013Q1

REPORT INFORMATION
  Report Type: Spontaneous
  Country: VE (occurrence: VE)
  Receive Date: 20130327
  Receipt Date: 20130327
  Transmission Date: 20140127
  Serious: Yes (Other)
  Sender: FDA-Public Use
  Company Number: VE-BAYER-2013-020895

PATIENT
  Age: 72 Year
  Sex: Female

DRUGS (1)
  1. AVELOX [Suspect]
     Indication: PNEUMONIA
     Dosage: 400 MG, QD
     Route: 048
     Dates: start: 20121213, end: 20121214

REACTIONS (1)
  - Respiratory distress [Recovered/Resolved]
